FAERS Safety Report 19890540 (Version 1)
Quarter: 2021Q3

REPORT INFORMATION
  Report Type: Spontaneous
  Country: US (occurrence: US)
  Receive Date: 20210927
  Receipt Date: 20210927
  Transmission Date: 20211014
  Serious: No
  Sender: FDA-Public Use
  Company Number: None

PATIENT

DRUGS (1)
  1. D5NS [DEXTROSE\SODIUM CHLORIDE] [Suspect]
     Active Substance: DEXTROSE\SODIUM CHLORIDE

REACTIONS (2)
  - Drug monitoring procedure not performed [None]
  - Product dose omission issue [None]
